FAERS Safety Report 6936708-3 (Version None)
Quarter: 2010Q3

REPORT INFORMATION
  Report Type: 
  Country: None (occurrence: None)
  Receive Date: 20100823
  Receipt Date: 20100812
  Transmission Date: 20110219
  Serious: Yes (Hospitalization)
  Sender: FDA-Public Use
  Company Number: FR-SHIRE-SPV1-2010-01412

PATIENT

DRUGS (1)
  1. VELAGLUCERASE ALFA [Suspect]
     Indication: GAUCHER'S DISEASE
     Dosage: 60 IU/KG, 1X/2WKS
     Route: 041
     Dates: start: 20100713

REACTIONS (2)
  - BONE PAIN [None]
  - EPISCLERITIS [None]
